FAERS Safety Report 7316663-7 (Version None)
Quarter: 2011Q1

REPORT INFORMATION
  Report Type: 
  Country: None (occurrence: None)
  Receive Date: 20110226
  Receipt Date: 20100726
  Transmission Date: 20110831
  Serious: No
  Sender: FDA-Public Use
  Company Number: US-ALLERGAN-1009636US

PATIENT
  Sex: Female

DRUGS (7)
  1. VITACLEAR [Concomitant]
  2. PROACTIV SOLUTION RENEWING CLEANSER [Concomitant]
  3. ASCORBIC ACID [Concomitant]
     Indication: SUPPLEMENTATION THERAPY
  4. BOTOX COSMETIC [Suspect]
     Indication: SKIN WRINKLING
     Dosage: UNK
     Route: 030
     Dates: start: 20100721, end: 20100721
  5. ZYRTEC [Concomitant]
  6. JUVEDERM [Suspect]
     Indication: SKIN WRINKLING
     Dosage: UNK
     Dates: start: 20100721, end: 20100721
  7. CALCIUM + VITAMIN D [Concomitant]
     Indication: SUPPLEMENTATION THERAPY

REACTIONS (3)
  - CONTUSION [None]
  - RASH [None]
  - EYE SWELLING [None]
